FAERS Safety Report 15693062 (Version 1)
Quarter: 2018Q4

REPORT INFORMATION
  Report Type: Spontaneous
  Country: GB (occurrence: GB)
  Receive Date: 20181206
  Receipt Date: 20181206
  Transmission Date: 20190205
  Serious: Yes (Death, Hospitalization)
  Sender: FDA-Public Use
  Company Number: GB-VISTAPHARM, INC.-VER201810-000897

PATIENT
  Age: 69 Year
  Sex: Female

DRUGS (1)
  1. OXYCODONE [Suspect]
     Active Substance: OXYCODONE
     Indication: PRODUCT USED FOR UNKNOWN INDICATION
     Dosage: UNKNOWN

REACTIONS (4)
  - Loss of consciousness [Recovered/Resolved]
  - Intentional overdose [Unknown]
  - Suicide attempt [Unknown]
  - Pulmonary embolism [Fatal]
